FAERS Safety Report 4569508-2 (Version None)
Quarter: 2005Q1

REPORT INFORMATION
  Report Type: 
  Country: None (occurrence: None)
  Receive Date: 20050201
  Receipt Date: 20050121
  Transmission Date: 20050727
  Serious: Yes (Other)
  Sender: FDA-Public Use
  Company Number: 2005018861

PATIENT
  Age: 45 Year
  Sex: Female
  Weight: 80.7 kg

DRUGS (1)
  1. GENOTROPIN [Suspect]
     Indication: HYPOPITUITARISM
     Dosage: 0.25 MG (5 MG, 1 IN 1 D)
     Dates: start: 20011010

REACTIONS (1)
  - NEOPLASM PROGRESSION [None]
